FAERS Safety Report 6417536-4 (Version None)
Quarter: 2009Q4

REPORT INFORMATION
  Report Type: 
  Country: None (occurrence: None)
  Receive Date: 20091026
  Receipt Date: 20091008
  Transmission Date: 20100525
  Serious: Yes (Death, Hospitalization)
  Sender: FDA-Public Use
  Company Number: 8053397

PATIENT
  Age: 31 Year
  Sex: Female

DRUGS (4)
  1. PREDNISOLONE [Suspect]
     Indication: ERYTHEMA NODOSUM LEPROSUM
  2. MORPHINE SULFATE [Suspect]
     Indication: PAIN
  3. CLOFAZIMINE [Suspect]
     Indication: ERYTHEMA NODOSUM LEPROSUM
     Dosage: NI /D
  4. THALIDOMIDE [Suspect]
     Indication: ERYTHEMA NODOSUM LEPROSUM
     Dosage: 400 MG /D

REACTIONS (12)
  - ANAEMIA [None]
  - ARTHRALGIA [None]
  - CANDIDIASIS [None]
  - DECREASED APPETITE [None]
  - DEPRESSION [None]
  - DIARRHOEA [None]
  - ERYTHEMA NODOSUM LEPROSUM [None]
  - LYMPHADENITIS [None]
  - NUCHAL RIGIDITY [None]
  - SKIN ULCER [None]
  - SYNCOPE [None]
  - WEIGHT DECREASED [None]
